FAERS Safety Report 20033318 (Version 1)
Quarter: 2021Q4

REPORT INFORMATION
  Report Type: Spontaneous
  Country: US (occurrence: US)
  Receive Date: 20211104
  Receipt Date: 20211104
  Transmission Date: 20220303
  Serious: No
  Sender: FDA-Public Use
  Company Number: US-HORIZON THERAPEUTICS-HZN-2021-006947

PATIENT

DRUGS (2)
  1. TEPEZZA [Suspect]
     Active Substance: TEPROTUMUMAB-TRBW
     Indication: Product used for unknown indication
     Dosage: 7TH INFUSION
     Route: 065
  2. TEPEZZA [Suspect]
     Active Substance: TEPROTUMUMAB-TRBW
     Dosage: 8TH INFUSION
     Route: 065

REACTIONS (11)
  - Eye swelling [Recovered/Resolved]
  - Eye pain [Recovered/Resolved]
  - Oral pain [Unknown]
  - Oropharyngeal pain [Unknown]
  - Heart rate increased [Unknown]
  - Muscle spasms [Unknown]
  - Tinnitus [Unknown]
  - Diarrhoea [Unknown]
  - Blood glucose increased [Unknown]
  - Fatigue [Unknown]
  - Headache [Unknown]
